FAERS Safety Report 5851353-9 (Version None)
Quarter: 2008Q3

REPORT INFORMATION
  Report Type: 
  Country: None (occurrence: None)
  Receive Date: 20080820
  Receipt Date: 20080813
  Transmission Date: 20090109
  Serious: Yes (Life-Threatening, Hospitalization)
  Sender: FDA-Public Use
  Company Number: US-MERCK-0808USA02669

PATIENT

DRUGS (1)
  1. INVANZ [Suspect]
     Indication: BACTERIAL INFECTION
     Route: 042

REACTIONS (1)
  - BLOOD POTASSIUM DECREASED [None]
